FAERS Safety Report 8607463-6 (Version None)
Quarter: 2012Q3

REPORT INFORMATION
  Report Type: 
  Country: None (occurrence: None)
  Receive Date: 20120821
  Receipt Date: 20120807
  Transmission Date: 20120928
  Serious: No
  Sender: FDA-Public Use
  Company Number: US-JNJFOC-20120804539

PATIENT
  Sex: Female
  Weight: 77.11 kg

DRUGS (5)
  1. UNKNOWN MEDICATION [Suspect]
     Indication: BACK PAIN
     Route: 008
  2. DURAGESIC-100 [Suspect]
     Route: 062
     Dates: start: 20120101
  3. DURAGESIC-100 [Suspect]
     Indication: BACK PAIN
     Route: 062
  4. DURAGESIC-100 [Suspect]
     Route: 062
  5. DURAGESIC-100 [Suspect]
     Indication: MUSCULOSKELETAL PAIN
     Route: 062

REACTIONS (6)
  - INTERVERTEBRAL DISC PROTRUSION [None]
  - BACK PAIN [None]
  - DRUG INEFFECTIVE [None]
  - FALL [None]
  - PRODUCT QUALITY ISSUE [None]
  - WRONG TECHNIQUE IN DRUG USAGE PROCESS [None]
